FAERS Safety Report 16721357 (Version 1)
Quarter: 2019Q3

REPORT INFORMATION
  Report Type: Spontaneous
  Country: US (occurrence: US)
  Receive Date: 20190820
  Receipt Date: 20190820
  Transmission Date: 20191005
  Serious: Yes (Other)
  Sender: FDA-Public Use
  Company Number: US-TEVA-2019-US-1093595

PATIENT
  Age: 82 Year
  Sex: Male

DRUGS (7)
  1. DULOXETINE. [Concomitant]
     Active Substance: DULOXETINE
     Indication: PSYCHOTHERAPY
     Route: 065
  2. DISULFIRAM. [Suspect]
     Active Substance: DISULFIRAM
     Indication: LYME DISEASE
     Dosage: 500 MILLIGRAM DAILY;
     Route: 048
     Dates: start: 201801
  3. AMPHETAMINE [Concomitant]
     Active Substance: AMPHETAMINE
     Indication: PSYCHOTHERAPY
     Route: 065
  4. ARIPIPRAZOLE. [Concomitant]
     Active Substance: ARIPIPRAZOLE
     Indication: PSYCHOTHERAPY
     Route: 065
  5. IMIPRAMINE [Interacting]
     Active Substance: IMIPRAMINE
     Indication: BLADDER DYSFUNCTION
     Dosage: LOW DOSE
     Route: 065
  6. DISULFIRAM. [Interacting]
     Active Substance: DISULFIRAM
     Indication: BABESIOSIS
  7. KETAMINE [Concomitant]
     Active Substance: KETAMINE
     Indication: DEPRESSION
     Dosage: ADMINISTERED EVERY 6 WEEKS
     Route: 041
     Dates: start: 201604

REACTIONS (6)
  - Loss of personal independence in daily activities [Unknown]
  - Off label use [Unknown]
  - Fatigue [Unknown]
  - Concussion [Recovered/Resolved]
  - Drug interaction [Unknown]
  - Syncope [Recovered/Resolved]

NARRATIVE: CASE EVENT DATE: 201802
